FAERS Safety Report 25920298 (Version 2)
Quarter: 2025Q4

REPORT INFORMATION
  Report Type: Report from Study
  Country: EU (occurrence: EU)
  Receive Date: 20251014
  Receipt Date: 20251107
  Transmission Date: 20260118
  Serious: Yes (Hospitalization)
  Sender: ABBVIE
  Company Number: EU-ABBVIE-6501500

PATIENT
  Age: 29 Year
  Sex: Male
  Weight: 120 kg

DRUGS (4)
  1. SKYRIZI [Suspect]
     Active Substance: RISANKIZUMAB-RZAA
     Indication: Psoriasis
     Route: 058
     Dates: start: 20230221
  2. IBUPROFEN [Concomitant]
     Active Substance: IBUPROFEN
     Indication: Arthralgia
     Dosage: TIME INTERVAL: 0.33333333 DAYS
     Route: 048
     Dates: start: 20240319
  3. IBUPROFEN [Concomitant]
     Active Substance: IBUPROFEN
     Indication: Arthralgia
     Route: 048
  4. PROMETHAZINE [Concomitant]
     Active Substance: PROMETHAZINE HYDROCHLORIDE
     Indication: Tension
     Dosage: TIME INTERVAL: 0.33333333 DAYS: AS NEEDED
     Route: 048
     Dates: start: 20240319

REACTIONS (15)
  - Depression [Not Recovered/Not Resolved]
  - Accident [Unknown]
  - Cognitive disorder [Unknown]
  - Motor dysfunction [Unknown]
  - Throat irritation [Unknown]
  - Radius fracture [Not Recovered/Not Resolved]
  - Lymphocyte count increased [Unknown]
  - Mean cell haemoglobin concentration decreased [Unknown]
  - Neutrophil count decreased [Unknown]
  - Blood bilirubin increased [Unknown]
  - Bilirubin conjugated increased [Unknown]
  - Blood bilirubin unconjugated increased [Unknown]
  - Alanine aminotransferase increased [Unknown]
  - Haematocrit increased [Unknown]
  - Blood urea decreased [Unknown]

NARRATIVE: CASE EVENT DATE: 20240101
